FAERS Safety Report 8027402-9 (Version None)
Quarter: 2012Q1

REPORT INFORMATION
  Report Type: 
  Country: None (occurrence: None)
  Receive Date: 20120106
  Receipt Date: 20111227
  Transmission Date: 20120608
  Serious: Yes (Other)
  Sender: FDA-Public Use
  Company Number: ES-SANOFI-AVENTIS-2011SA085147

PATIENT
  Age: 71 Year
  Sex: Female

DRUGS (10)
  1. SINTROM [Concomitant]
     Route: 065
  2. VYTORIN [Concomitant]
     Route: 065
  3. ESCITALOPRAM [Concomitant]
     Route: 065
  4. MULTAQ [Suspect]
     Indication: ATRIAL FIBRILLATION
     Route: 048
     Dates: start: 20110101, end: 20111125
  5. LORMETAZEPAM [Concomitant]
     Route: 065
  6. LEVOTHYROXINE SODIUM [Concomitant]
     Route: 065
  7. CLORAZEPATE DIPOTASSIUM [Concomitant]
     Route: 065
  8. MICARDIS HCT [Concomitant]
     Route: 065
  9. COROPRES [Concomitant]
     Route: 065
  10. IBANDRONATE SODIUM [Concomitant]
     Route: 065

REACTIONS (3)
  - DYSPNOEA [None]
  - SINUS BRADYCARDIA [None]
  - DIZZINESS [None]
